FAERS Safety Report 17125619 (Version 1)
Quarter: 2019Q4

REPORT INFORMATION
  Report Type: Report from Study
  Country: GB (occurrence: GB)
  Receive Date: 20191208
  Receipt Date: 20191208
  Transmission Date: 20200122
  Serious: Yes (Hospitalization)
  Sender: FDA-Public Use
  Company Number: NVSC2019GB061099

PATIENT
  Sex: Female

DRUGS (1)
  1. HYRIMOZ [Suspect]
     Active Substance: ADALIMUMAB-ADAZ
     Indication: CROHN^S DISEASE
     Dosage: UNK UNK, Q2W
     Route: 058

REACTIONS (4)
  - Body temperature increased [Unknown]
  - Arthralgia [Unknown]
  - Vomiting [Unknown]
  - Rash [Unknown]
